FAERS Safety Report 5881427-8 (Version None)
Quarter: 2008Q3

REPORT INFORMATION
  Report Type: 
  Country: None (occurrence: None)
  Receive Date: 20080912
  Receipt Date: 20080701
  Transmission Date: 20090109
  Serious: No
  Sender: FDA-Public Use
  Company Number: US-ABBOTT-08P-163-0460438-00

PATIENT
  Sex: Female
  Weight: 50.848 kg

DRUGS (6)
  1. HUMIRA [Suspect]
     Indication: RHEUMATOID ARTHRITIS
     Route: 058
     Dates: start: 20070701, end: 20080501
  2. HUMIRA [Suspect]
     Route: 058
     Dates: start: 20080501, end: 20080601
  3. PREDNISONE TAB [Concomitant]
     Indication: DRUG USE FOR UNKNOWN INDICATION
     Dates: end: 20080501
  4. METHYLPREDNISOLONE SODIUM SUCCINATE [Concomitant]
     Indication: DRUG USE FOR UNKNOWN INDICATION
     Dates: start: 20080624, end: 20080624
  5. METHYLPREDNISOLONE 16MG TAB [Concomitant]
     Indication: DRUG USE FOR UNKNOWN INDICATION
     Dates: start: 20080624
  6. EPIDURAL [Concomitant]
     Indication: CAESAREAN SECTION
     Dates: start: 20080624, end: 20080624

REACTIONS (3)
  - DRUG INEFFECTIVE [None]
  - GESTATIONAL DIABETES [None]
  - VISION BLURRED [None]
